FAERS Safety Report 13194155 (Version 1)
Quarter: 2017Q1

REPORT INFORMATION
  Report Type: Report from Study
  Country: None (occurrence: US)
  Receive Date: 20170207
  Receipt Date: 20170207
  Transmission Date: 20170428
  Serious: Yes (Other)
  Sender: FDA-Public Use
  Company Number: US-ABBVIE-17K-163-1856365-00

PATIENT
  Sex: Female

DRUGS (1)
  1. HUMIRA [Suspect]
     Active Substance: ADALIMUMAB
     Indication: RHEUMATOID ARTHRITIS
     Route: 058

REACTIONS (11)
  - Vitamin D decreased [Unknown]
  - Generalised oedema [Unknown]
  - Photosensitivity reaction [Unknown]
  - Bronchitis [Unknown]
  - Psoriasis [Unknown]
  - Diarrhoea [Unknown]
  - Headache [Unknown]
  - Dry eye [Unknown]
  - Biopsy artery [Unknown]
  - Rheumatoid arthritis [Unknown]
  - Fatigue [Unknown]

NARRATIVE: CASE EVENT DATE: 2015
